FAERS Safety Report 9925211 (Version 1)
Quarter: 2014Q1

REPORT INFORMATION
  Report Type: Spontaneous
  Country: AU (occurrence: AU)
  Receive Date: 20140226
  Receipt Date: 20140226
  Transmission Date: 20141002
  Serious: Yes (Other)
  Sender: FDA-Public Use
  Company Number: AU-MYLANLABS-2014S1003743

PATIENT
  Age: 41 Year
  Sex: Male

DRUGS (6)
  1. QUETIAPINE FUMARATE [Suspect]
     Route: 048
  2. CARBAMAZEPINE [Suspect]
  3. EPINEPHRINE [Suspect]
     Route: 042
  4. FLUOXETINE HYDROCHLORIDE [Suspect]
     Route: 048
  5. OXAZEPAM [Suspect]
  6. VALPROATE SODIUM [Suspect]
     Route: 048

REACTIONS (7)
  - Electrocardiogram QT prolonged [Unknown]
  - Hyperdynamic left ventricle [Unknown]
  - Metabolic acidosis [Unknown]
  - Coma [Unknown]
  - Vasoplegia syndrome [Unknown]
  - Overdose [Unknown]
  - Hypotension [Unknown]
